FAERS Safety Report 7537798-X (Version None)
Quarter: 2011Q2

REPORT INFORMATION
  Report Type: 
  Country: None (occurrence: None)
  Receive Date: 20110609
  Receipt Date: 20110524
  Transmission Date: 20111010
  Serious: No
  Sender: FDA-Public Use
  Company Number: US-B.I. PHARMACEUTICALS,INC./RIDGEFIELD-2011-BP-12563BP

PATIENT
  Age: 67 Year
  Sex: Male

DRUGS (13)
  1. PRADAXA [Suspect]
     Indication: PULMONARY EMBOLISM
     Dosage: 300 MG
     Route: 048
     Dates: start: 20110301
  2. METOPROLOL SUCCINATE [Concomitant]
     Dosage: 50 MG
  3. SENNOKOT [Concomitant]
  4. METHADONE HCL [Concomitant]
     Dosage: 50 MG
  5. SIMVASTATIN [Concomitant]
     Dosage: 20 MG
  6. IMDUR [Concomitant]
     Dosage: 30 MG
  7. CENTRUM SILVER [Concomitant]
  8. SUSTENEX [Concomitant]
  9. PLAVIX [Concomitant]
     Dosage: 40 MG
  10. FUROSEMIDE [Concomitant]
     Dosage: 20 MG
  11. GABAPENTIN [Concomitant]
     Dosage: 200 MG
  12. POTASSIUM CL ER [Concomitant]
     Dosage: 10 MEQ
  13. PERI-COLACE [Concomitant]

REACTIONS (3)
  - HAEMOPTYSIS [None]
  - DYSPEPSIA [None]
  - DYSPNOEA [None]
